FAERS Safety Report 15761685 (Version 3)
Quarter: 2019Q1

REPORT INFORMATION
  Report Type: Spontaneous
  Country: IL (occurrence: IL)
  Receive Date: 20181226
  Receipt Date: 20190123
  Transmission Date: 20190417
  Serious: Yes (Life-Threatening, Hospitalization)
  Sender: FDA-Public Use
  Company Number: IL-CELGENEUS-ISR-20181207083

PATIENT
  Age: 77 Year
  Sex: Female
  Weight: 81 kg

DRUGS (20)
  1. DISEPTYL FORTE [Concomitant]
     Indication: BACTERIAL INFECTION
     Dosage: 45.7143 MILLIGRAM
     Route: 048
     Dates: start: 20161226
  2. PLAVIX [Concomitant]
     Active Substance: CLOPIDOGREL BISULFATE
     Indication: CEREBROVASCULAR ACCIDENT
     Dosage: 75 MILLIGRAM
     Route: 048
     Dates: start: 20170930
  3. OPTALGIN [Concomitant]
     Active Substance: METAMIZOLE
     Indication: PAIN PROPHYLAXIS
     Dosage: 2000 MILLIGRAM
     Route: 048
     Dates: start: 20171009
  4. APIXABAN [Concomitant]
     Active Substance: APIXABAN
     Indication: UPPER RESPIRATORY TRACT INFECTION
  5. OPTALGIN [Concomitant]
     Active Substance: METAMIZOLE
     Indication: FALL
     Dosage: 3000 MILLIGRAM
     Route: 048
     Dates: start: 20180706
  6. APIXABAN [Concomitant]
     Active Substance: APIXABAN
     Indication: ATRIAL FIBRILLATION
     Dosage: 10 MILLIGRAM
     Route: 048
     Dates: start: 20170924
  7. REVLIMID [Suspect]
     Active Substance: LENALIDOMIDE
     Indication: PLASMA CELL MYELOMA
     Dosage: 25 MILLIGRAM
     Route: 048
     Dates: start: 20161027
  8. ASPIRIN. [Concomitant]
     Active Substance: ASPIRIN
     Indication: THROMBOSIS PROPHYLAXIS
     Dosage: 100 MILLIGRAM
     Route: 048
     Dates: start: 20161027
  9. VITAMIN B12 [Concomitant]
     Active Substance: CYANOCOBALAMIN
     Indication: NUTRITIONAL SUPPLEMENTATION
     Dosage: 1000 MICROGRAM
     Route: 060
     Dates: start: 201608
  10. DEXAMETHASONE. [Suspect]
     Active Substance: DEXAMETHASONE
     Indication: PLASMA CELL MYELOMA
     Dosage: 40 MILLIGRAM
     Route: 048
     Dates: start: 20161027
  11. ACAMOL [Concomitant]
     Active Substance: ACETAMINOPHEN
     Indication: SYNCOPE
     Dosage: 3000 MILLIGRAM
     Route: 048
     Dates: start: 20171012
  12. BLOOD [Concomitant]
     Active Substance: WHOLE BLOOD
     Indication: HAEMOGLOBIN DECREASED
     Dosage: 1 UNIT
     Route: 065
     Dates: start: 20181017
  13. DALACIN [Concomitant]
     Active Substance: CLINDAMYCIN
     Indication: SKIN LACERATION
     Dosage: 600 MILLIGRAM
     Route: 048
     Dates: start: 20161216
  14. CANNABIS [Concomitant]
     Active Substance: CANNABIS SATIVA SUBSP. INDICA TOP
     Indication: PAIN
     Dosage: 20 MILLIGRAM
     Route: 048
     Dates: start: 20161127
  15. MAGNESIUM [Concomitant]
     Active Substance: MAGNESIUM
     Indication: MUSCLE SPASMS
     Route: 048
     Dates: start: 20180501
  16. LIPITOR [Concomitant]
     Active Substance: ATORVASTATIN CALCIUM
     Indication: CEREBROVASCULAR ACCIDENT
     Dosage: 40 MILLIGRAM
     Route: 048
     Dates: start: 20170930
  17. VITAMIN D [Concomitant]
     Active Substance: CHOLECALCIFEROL
     Indication: OSTEOPOROSIS PROPHYLAXIS
     Dosage: 6 GTT
     Route: 048
     Dates: start: 20170119
  18. LORIVAN [Concomitant]
     Indication: SLEEP DISORDER THERAPY
     Dosage: .5 MILLIGRAM
     Route: 048
     Dates: start: 20171012
  19. CARDILOC [Concomitant]
     Active Substance: BISOPROLOL FUMARATE
     Indication: SYNCOPE
     Dosage: 1.25 MILLIGRAM
     Route: 048
     Dates: start: 20171011
  20. FOLIC ACID. [Concomitant]
     Active Substance: FOLIC ACID
     Indication: FOLATE DEFICIENCY
     Dosage: 5 MILLIGRAM
     Route: 048
     Dates: start: 20160802

REACTIONS (2)
  - Haematoma infection [Not Recovered/Not Resolved]
  - Febrile neutropenia [Not Recovered/Not Resolved]

NARRATIVE: CASE EVENT DATE: 20181202
